FAERS Safety Report 24535656 (Version 3)
Quarter: 2024Q4

REPORT INFORMATION
  Report Type: Spontaneous
  Country: US (occurrence: US)
  Receive Date: 20241022
  Receipt Date: 20241112
  Transmission Date: 20250115
  Serious: No
  Sender: PFIZER
  Company Number: US-PFIZER INC-202400280065

PATIENT
  Age: 90 Year
  Sex: Female

DRUGS (1)
  1. IBRANCE [Suspect]
     Active Substance: PALBOCICLIB
     Dosage: TAKE 1 TABLET DAILY CONSECUTIVELY DAYS 1-21, FOLLOWED BY 7 DAYS OFF FOR 28 DAY CYCLE
     Route: 048

REACTIONS (1)
  - Haemorrhage [Unknown]
